FAERS Safety Report 8551919-1 (Version None)
Quarter: 2012Q3

REPORT INFORMATION
  Report Type: 
  Country: None (occurrence: None)
  Receive Date: 20120730
  Receipt Date: 20120720
  Transmission Date: 20120928
  Serious: Yes (Hospitalization)
  Sender: FDA-Public Use
  Company Number: PL-UCBSA-061252

PATIENT
  Age: 57 Year
  Sex: Female
  Weight: 117 kg

DRUGS (5)
  1. SPIRONOLACTONE [Concomitant]
     Indication: HYPERTENSION
     Dates: start: 20080101
  2. KETOPROFEN [Concomitant]
     Indication: PSORIATIC ARTHROPATHY
     Dates: start: 20110201
  3. LOSACOR [Concomitant]
     Indication: HYPERTENSION
     Dates: start: 20080101
  4. FUROSEMID [Concomitant]
     Indication: HYPERTENSION
     Dates: start: 20080101
  5. CIMZIA [Suspect]
     Indication: PSORIATIC ARTHROPATHY
     Route: 058
     Dates: start: 20120215, end: 20120703

REACTIONS (1)
  - ERYSIPELAS [None]
